FAERS Safety Report 6329835-5 (Version None)
Quarter: 2009Q3

REPORT INFORMATION
  Report Type: 
  Country: None (occurrence: None)
  Receive Date: 20090826
  Receipt Date: 20090817
  Transmission Date: 20100115
  Serious: Yes (Hospitalization, Other)
  Sender: FDA-Public Use
  Company Number: IE-ABBOTT-08P-229-0459340-00

PATIENT
  Sex: Female
  Weight: 59 kg

DRUGS (15)
  1. HUMIRA [Suspect]
     Indication: CROHN'S DISEASE
     Route: 058
     Dates: start: 20080403
  2. PREDNISONE TAB [Concomitant]
     Indication: CROHN'S DISEASE
     Dates: start: 20070301
  3. AZATHIOPRINE [Concomitant]
     Indication: CROHN'S DISEASE
  4. PENTASA [Concomitant]
     Indication: CROHN'S DISEASE
  5. TYLEX [Concomitant]
     Indication: PAIN
     Dosage: 1-2 DOSES
     Dates: start: 20080601
  6. FEMATAB [Concomitant]
     Indication: HORMONE REPLACEMENT THERAPY
     Dates: start: 20040101
  7. CALCICHEW [Concomitant]
     Indication: PROPHYLAXIS
     Dates: start: 20050303
  8. CALCICHEW [Concomitant]
     Indication: STEROID THERAPY
  9. SLOW-K [Concomitant]
     Indication: BLOOD POTASSIUM DECREASED
     Dates: start: 20061208
  10. PRILOSEC [Concomitant]
     Indication: DYSPEPSIA
     Dates: start: 20061201
  11. PRILOSEC [Concomitant]
     Indication: GASTRITIS
     Dates: start: 20080613
  12. PRILOSEC [Concomitant]
     Indication: DUODENITIS
  13. PARACETAMOL [Concomitant]
     Indication: PAIN
     Dates: start: 20080611
  14. ISTIN [Concomitant]
     Indication: HYPERTENSION
     Dates: start: 20080611, end: 20080611
  15. CALOGEN [Concomitant]
     Indication: WEIGHT DECREASED
     Dates: start: 20061201

REACTIONS (1)
  - CHOLELITHIASIS [None]
